FAERS Safety Report 4877998-0 (Version None)
Quarter: 2006Q1

REPORT INFORMATION
  Report Type: 
  Country: None (occurrence: None)
  Receive Date: 20060110
  Receipt Date: 20051228
  Transmission Date: 20060701
  Serious: Yes (Hospitalization, Other)
  Sender: FDA-Public Use
  Company Number: 2005169364

PATIENT
  Age: 85 Year
  Sex: Male
  Weight: 34.7 kg

DRUGS (14)
  1. VFEND [Suspect]
     Indication: BRONCHOPULMONARY ASPERGILLOSIS
     Dosage: 200 MG (200 MG, 1 IN 1 D), INTRAVENOUS
     Route: 042
     Dates: start: 20051129, end: 20051205
  2. VANCOMYCIN [Suspect]
     Indication: STAPHYLOCOCCAL SEPSIS
     Dosage: 1 DROP (0.5 MG, 2 IN 1 D), INTRAVENOUS
     Route: 042
     Dates: start: 20051207, end: 20051211
  3. TAZOCIN (PIPERACILLIN SODIUM, TAZOBACTAM SODIUM) [Concomitant]
  4. PREDNISOLONE [Concomitant]
  5. TICLOPIDINE HCL [Concomitant]
  6. FOSFLUCONAZOLE (FOSFLUCONAZOLE) [Concomitant]
  7. ALENDRONATE SODIUM [Concomitant]
  8. ETODOLAC [Concomitant]
  9. NIZATIDINE [Concomitant]
  10. PREDNISOLONE [Concomitant]
  11. KEISHBUKURYOUGAN (HERBAL EXTRACTS NOS) [Concomitant]
  12. COLCHICUM JTL LIQ [Concomitant]
  13. LAC B (LACTOBACILLUS BIFIDUS, LYOPHILIZED) [Concomitant]
  14. VANCOMYCIN HYDROCHLORIDE [Concomitant]

REACTIONS (14)
  - ANAEMIA [None]
  - CEREBRAL INFARCTION [None]
  - DYSARTHRIA [None]
  - DYSKINESIA [None]
  - DYSPHAGIA [None]
  - FUNGUS SEROLOGY TEST POSITIVE [None]
  - HALLUCINATION [None]
  - HEPATIC FUNCTION ABNORMAL [None]
  - HYDROCEPHALUS [None]
  - JAUNDICE [None]
  - JOINT DISLOCATION [None]
  - MOUTH HAEMORRHAGE [None]
  - PHOTOPHOBIA [None]
  - PLATELET COUNT DECREASED [None]
